FAERS Safety Report 9168408 (Version 5)
Quarter: 2019Q4

REPORT INFORMATION
  Report Type: Spontaneous
  Country: US (occurrence: US)
  Receive Date: 20130318
  Receipt Date: 20191108
  Transmission Date: 20200122
  Serious: Yes (Hospitalization, Other)
  Sender: FDA-Public Use
  Company Number: US-MERCK-1303USA007590

PATIENT
  Sex: Female
  Weight: 86.17 kg

DRUGS (5)
  1. FOSAMAX [Suspect]
     Active Substance: ALENDRONATE SODIUM
     Indication: OSTEOPENIA
     Dosage: 35 MG, UNK
     Route: 048
     Dates: start: 200403, end: 201106
  2. FOSAMAX [Suspect]
     Active Substance: ALENDRONATE SODIUM
     Dosage: 70 MG QW
     Route: 048
  3. FOSAMAX PLUS D [Suspect]
     Active Substance: ALENDRONATE SODIUM\CHOLECALCIFEROL
     Indication: OSTEOPENIA
     Dosage: 70 MG, UNK
     Route: 048
  4. PREMPRO [Concomitant]
     Active Substance: ESTROGENS, CONJUGATED\MEDROXYPROGESTERONE ACETATE
     Indication: MENOPAUSAL SYMPTOMS
     Dosage: UNK
     Dates: start: 2001
  5. ALENDRONATE SODIUM. [Suspect]
     Active Substance: ALENDRONATE SODIUM
     Indication: OSTEOPENIA
     Dosage: UNK

REACTIONS (18)
  - Fall [Unknown]
  - Femur fracture [Unknown]
  - Hysteroscopy [Unknown]
  - Tooth extraction [Unknown]
  - Intramedullary rod insertion [Unknown]
  - Blood cholesterol increased [Unknown]
  - Osteoporosis [Unknown]
  - Migraine [Unknown]
  - Anaemia [Unknown]
  - Body height decreased [Unknown]
  - Hypothyroidism [Unknown]
  - Breast cyst [Unknown]
  - Deep vein thrombosis [Unknown]
  - Electrocardiogram abnormal [Unknown]
  - Foot fracture [Unknown]
  - Constipation [Unknown]
  - Polypectomy [Unknown]
  - Depression [Unknown]

NARRATIVE: CASE EVENT DATE: 2001
